FAERS Safety Report 26088309 (Version 1)
Quarter: 2025Q4

REPORT INFORMATION
  Report Type: Spontaneous
  Country: US (occurrence: None)
  Receive Date: 20251125
  Receipt Date: 20251125
  Transmission Date: 20260119
  Serious: Yes (Death)
  Sender: FDA-CTU
  Company Number: None

PATIENT
  Age: 38 Year
  Sex: Female
  Weight: 54.9 kg

DRUGS (1)
  1. DOVATO [Suspect]
     Active Substance: DOLUTEGRAVIR SODIUM\LAMIVUDINE
     Dosage: FREQUENCY : DAILY;?
     Route: 048

REACTIONS (2)
  - Neoplasm malignant [None]
  - Disease complication [None]

NARRATIVE: CASE EVENT DATE: 20251124
